FAERS Safety Report 16859864 (Version 1)
Quarter: 2019Q3

REPORT INFORMATION
  Report Type: Spontaneous
  Country: PL (occurrence: PL)
  Receive Date: 20190927
  Receipt Date: 20190927
  Transmission Date: 20191005
  Serious: Yes (Death)
  Sender: FDA-Public Use
  Company Number: PL-MYLANLABS-2019M1090464

PATIENT
  Age: 64 Year
  Sex: Female

DRUGS (8)
  1. FLUCONAZOLE. [Suspect]
     Active Substance: FLUCONAZOLE
     Indication: ORAL FUNGAL INFECTION
     Dosage: 200 MG DAILY, PERIODICALLY
     Route: 048
  2. AMITRIPTYLINE [Suspect]
     Active Substance: AMITRIPTYLINE
     Indication: CANCER PAIN
     Dosage: 150 MILLIGRAM, QD
  3. OLANZAPINE. [Suspect]
     Active Substance: OLANZAPINE
     Indication: PRODUCT USED FOR UNKNOWN INDICATION
     Dosage: 10 MILLIGRAM, QD, BEFORE SLEEP
  4. FUROSEMIDE. [Suspect]
     Active Substance: FUROSEMIDE
     Indication: OEDEMA PERIPHERAL
     Dosage: UNK
  5. HEPARIN [Concomitant]
     Active Substance: HEPARIN SODIUM
     Dosage: AT A PROPHYLACTIC DOSE
  6. POTASSIUM [Concomitant]
     Active Substance: POTASSIUM
     Dosage: UNK
  7. MORPHINE [Suspect]
     Active Substance: MORPHINE
     Indication: CANCER PAIN
     Dosage: 240 MILLIGRAM, QD
     Route: 048
  8. FUROSEMIDE. [Suspect]
     Active Substance: FUROSEMIDE
     Dosage: UNK

REACTIONS (4)
  - Pulmonary embolism [Fatal]
  - Somnolence [Not Recovered/Not Resolved]
  - Confusional state [Not Recovered/Not Resolved]
  - Drug interaction [Fatal]
